FAERS Safety Report 7723775-2 (Version None)
Quarter: 2011Q3

REPORT INFORMATION
  Report Type: 
  Country: None (occurrence: None)
  Receive Date: 20110901
  Receipt Date: 20110819
  Transmission Date: 20111222
  Serious: Yes (Hospitalization, Other)
  Sender: FDA-Public Use
  Company Number: PHEH2011US01975

PATIENT
  Sex: Female

DRUGS (16)
  1. ADVAIR DISKUS 100/50 [Concomitant]
  2. VITAMIN D [Concomitant]
  3. CALCIUM CARBONATE [Concomitant]
  4. BONIVA [Concomitant]
  5. ATIVAN [Concomitant]
     Dosage: 20 MG, UNK
  6. COREG [Concomitant]
     Dosage: 3.125 MG, UNK
  7. SPIRIVA [Concomitant]
  8. LANEX [Concomitant]
     Dosage: 500 MG, UNK
  9. ALBUTEROL SULFATE AUTOHALER [Concomitant]
  10. COMBIVENT [Concomitant]
  11. ASPIRIN [Concomitant]
  12. PROTONIX [Concomitant]
     Dosage: 40 MG, UNK
  13. PREDNISONE [Suspect]
  14. TEKTURNA [Suspect]
     Dosage: 150 MG DAILY, UNK
  15. CRESTOR [Concomitant]
     Dosage: 5 MG, UNK
  16. PLAVIX [Concomitant]
     Dosage: 75 MG, UNK

REACTIONS (9)
  - FOOT FRACTURE [None]
  - LUNG DISORDER [None]
  - CATARACT [None]
  - LUNG INFECTION [None]
  - HYPERSENSITIVITY [None]
  - MALAISE [None]
  - CHRONIC OBSTRUCTIVE PULMONARY DISEASE [None]
  - WEIGHT FLUCTUATION [None]
  - BONE DISORDER [None]
